FAERS Safety Report 21379547 (Version 2)
Quarter: 2022Q4

REPORT INFORMATION
  Report Type: Spontaneous
  Country: GB (occurrence: GB)
  Receive Date: 20220927
  Receipt Date: 20221007
  Transmission Date: 20230113
  Serious: Yes (Hospitalization, Other)
  Sender: FDA-Public Use
  Company Number: GB-MYLANLABS-2022M1096524

PATIENT
  Age: 41 Year
  Sex: Female
  Weight: 68.9 kg

DRUGS (2)
  1. CLOZARIL [Suspect]
     Active Substance: CLOZAPINE
     Indication: Schizophrenia
     Dosage: UNK
     Route: 048
     Dates: start: 20090225
  2. CLOZARIL [Suspect]
     Active Substance: CLOZAPINE
     Dosage: 250 MILLIGRAM, HS(OD NOCTE)
     Route: 048
     Dates: start: 200902

REACTIONS (6)
  - Hyperkalaemia [Unknown]
  - Abdominal pain [Unknown]
  - Constipation [Unknown]
  - Thyrotoxic crisis [Unknown]
  - Goitre [Unknown]
  - Blood calcium increased [Unknown]
